FAERS Safety Report 5891716-9 (Version None)
Quarter: 2008Q3

REPORT INFORMATION
  Report Type: 
  Country: None (occurrence: None)
  Receive Date: 20080922
  Receipt Date: 20080912
  Transmission Date: 20090109
  Serious: Yes (Other)
  Sender: FDA-Public Use
  Company Number: IE-B.I. PHARMACEUTICALS,INC./RIDGEFIELD-2008-UK-01562UK

PATIENT
  Age: 68 Year
  Sex: Male

DRUGS (3)
  1. PRAMIPEXOLE DIHYDROCHLORIDE [Suspect]
     Indication: PARKINSON'S DISEASE
     Dosage: 2.1MG
     Route: 048
     Dates: start: 20010822, end: 20080902
  2. ELDEPRYL [Concomitant]
     Dosage: 5MG
  3. SINEMET CR [Concomitant]

REACTIONS (1)
  - IMPULSIVE BEHAVIOUR [None]
